FAERS Safety Report 24835241 (Version 1)
Quarter: 2025Q1

REPORT INFORMATION
  Report Type: Spontaneous
  Country: US (occurrence: US)
  Receive Date: 20250113
  Receipt Date: 20250113
  Transmission Date: 20250408
  Serious: Yes (Hospitalization, Other)
  Sender: DENTSPLY
  Company Number: US-DENTSPLY-2025SCDP000008

PATIENT
  Age: 7 Year
  Sex: Female
  Weight: 27 kg

DRUGS (7)
  1. BENZOCAINE [Suspect]
     Active Substance: BENZOCAINE
     Indication: Oropharyngeal pain
  2. BACLOFEN [Concomitant]
     Active Substance: BACLOFEN
     Indication: Product used for unknown indication
  3. DIAZEPAM [Concomitant]
     Active Substance: DIAZEPAM
     Indication: Product used for unknown indication
  4. LEVETIRACETAM [Concomitant]
     Active Substance: LEVETIRACETAM
     Indication: Product used for unknown indication
     Route: 042
  5. MONTELUKAST [Concomitant]
     Active Substance: MONTELUKAST
     Indication: Product used for unknown indication
  6. ALBUTEROL [Concomitant]
     Active Substance: ALBUTEROL
     Indication: Product used for unknown indication
  7. PREDNISOLONE [Concomitant]
     Active Substance: PREDNISOLONE
     Indication: Wheezing

REACTIONS (3)
  - Accidental overdose [Unknown]
  - Drug intolerance [Unknown]
  - Methaemoglobinaemia [Recovered/Resolved]
